FAERS Safety Report 12629385 (Version 2)
Quarter: 2020Q3

REPORT INFORMATION
  Report Type: Report from Study
  Country: JP (occurrence: JP)
  Receive Date: 20160808
  Receipt Date: 20160811
  Transmission Date: 20201105
  Serious: Yes (Other)
  Sender: FDA-Public Use
  Company Number: JP-ROCHE-1806832

PATIENT
  Age: 52 Year
  Sex: Male

DRUGS (28)
  1. ALECTINIB. [Suspect]
     Active Substance: ALECTINIB
     Indication: LUNG ADENOCARCINOMA
     Route: 048
     Dates: start: 20121022, end: 20121022
  2. ALECTINIB. [Suspect]
     Active Substance: ALECTINIB
     Indication: LUNG ADENOCARCINOMA
     Route: 048
     Dates: start: 20140727, end: 20140727
  3. MEDICON (DEXTROMETHORPHAN HYDROBROMIDE) [Concomitant]
     Active Substance: DEXTROMETHORPHAN HYDROBROMIDE
     Indication: COUGH
     Dosage: DOSAGE IS UNCERTAIN.
     Route: 048
     Dates: start: 20120314, end: 20120501
  4. TRANSAMIN [Concomitant]
     Active Substance: TRANEXAMIC ACID
     Indication: HENOCH-SCHONLEIN PURPURA
     Route: 048
     Dates: start: 20130508
  5. ALECTINIB. [Suspect]
     Active Substance: ALECTINIB
     Indication: LUNG ADENOCARCINOMA
     Route: 048
     Dates: start: 20130617, end: 20130617
  6. ALECTINIB. [Suspect]
     Active Substance: ALECTINIB
     Indication: LUNG ADENOCARCINOMA
     Route: 048
     Dates: start: 20130618, end: 20140726
  7. ADONA (JAPAN) [Concomitant]
     Indication: HAEMOPTYSIS
     Dosage: DOSAGE IS UNCERTAIN.
     Route: 048
     Dates: end: 20120504
  8. LEVOFLOXACIN HEMIHYDRATE [Concomitant]
     Active Substance: LEVOFLOXACIN
     Dosage: DOSAGE IS UNCERTAIN.
     Route: 048
     Dates: start: 20160119, end: 20160125
  9. BROCIN?CODEINE [Concomitant]
     Dosage: DOSAGE IS UNCERTAIN.
     Route: 065
     Dates: start: 20160119, end: 20160121
  10. ADONA (JAPAN) [Concomitant]
     Indication: HENOCH-SCHONLEIN PURPURA
     Route: 048
     Dates: end: 20130508
  11. ALECTINIB. [Suspect]
     Active Substance: ALECTINIB
     Indication: LUNG ADENOCARCINOMA
     Route: 048
     Dates: start: 20130308, end: 20130608
  12. ALECTINIB. [Suspect]
     Active Substance: ALECTINIB
     Indication: LUNG ADENOCARCINOMA
     Route: 048
     Dates: start: 20120307, end: 20120327
  13. ALECTINIB. [Suspect]
     Active Substance: ALECTINIB
     Indication: LUNG ADENOCARCINOMA
     Route: 048
     Dates: start: 20120328, end: 20120328
  14. ALECTINIB. [Suspect]
     Active Substance: ALECTINIB
     Indication: LUNG ADENOCARCINOMA
     Route: 048
     Dates: start: 20120329, end: 20120530
  15. ALECTINIB. [Suspect]
     Active Substance: ALECTINIB
     Indication: LUNG ADENOCARCINOMA
     Route: 048
     Dates: start: 20130609, end: 20130609
  16. TIPEPIDINE HIBENZATE [Concomitant]
     Active Substance: TIPEPIDINE HIBENZATE
     Indication: COUGH
     Dosage: DOSAGE IS UNCERTAIN.
     Route: 048
     Dates: end: 20120313
  17. LOXOMARIN [Concomitant]
     Active Substance: LOXOPROFEN
     Indication: CANCER PAIN
     Dosage: DOSAGE IS UNCERTAIN.
     Route: 048
     Dates: end: 20120405
  18. GENTACIN [Concomitant]
     Active Substance: GENTAMICIN SULFATE
     Indication: INFECTION PROPHYLAXIS
     Dosage: DOSAGE IS UNCERTAIN.
     Route: 003
     Dates: start: 20130227, end: 20130303
  19. ALECTINIB. [Suspect]
     Active Substance: ALECTINIB
     Indication: LUNG ADENOCARCINOMA
     Route: 048
     Dates: start: 20120531, end: 20120531
  20. ALECTINIB. [Suspect]
     Active Substance: ALECTINIB
     Indication: LUNG ADENOCARCINOMA
     Route: 048
     Dates: start: 20140728
  21. REBAMIPIDE [Concomitant]
     Active Substance: REBAMIPIDE
     Indication: PROPHYLAXIS AGAINST GASTROINTESTINAL ULCER
     Dosage: DOSAGE IS UNCERTAIN.
     Route: 048
     Dates: start: 20130206, end: 20130502
  22. ALECTINIB. [Suspect]
     Active Substance: ALECTINIB
     Indication: LUNG ADENOCARCINOMA
     Route: 048
     Dates: start: 20120601, end: 20121021
  23. ALECTINIB. [Suspect]
     Active Substance: ALECTINIB
     Indication: LUNG ADENOCARCINOMA
     Route: 048
     Dates: start: 20121023, end: 20130226
  24. MUCOSTA [Concomitant]
     Active Substance: REBAMIPIDE
     Indication: PROPHYLAXIS AGAINST GASTROINTESTINAL ULCER
     Dosage: DOSAGE IS UNCERTAIN.
     Route: 048
     Dates: end: 20120405
  25. CEFCAPENE PIVOXIL HYDROCHLORIDE [Concomitant]
     Active Substance: CEFCAPENE PIVOXIL HYDROCHLORIDE
     Dosage: DOSAGE IS UNCERTAIN.
     Route: 065
  26. PL [Concomitant]
     Active Substance: ACETAMINOPHEN\CAFFEINE\PROMETHAZINE\SALICYLAMIDE
     Dosage: DOSAGE IS UNCERTAIN.
     Route: 048
     Dates: start: 20160413, end: 20160419
  27. URSO [Concomitant]
     Active Substance: URSODIOL
     Indication: CHOLELITHIASIS
     Route: 048
     Dates: start: 20131017
  28. ALECTINIB. [Suspect]
     Active Substance: ALECTINIB
     Indication: LUNG ADENOCARCINOMA
     Route: 048
     Dates: start: 20130610, end: 20130616

REACTIONS (1)
  - Oesophageal carcinoma [Not Recovered/Not Resolved]

NARRATIVE: CASE EVENT DATE: 20160727
